FAERS Safety Report 21592714 (Version 1)
Quarter: 2022Q4

REPORT INFORMATION
  Report Type: Spontaneous
  Country: US (occurrence: US)
  Receive Date: 20221114
  Receipt Date: 20221114
  Transmission Date: 20230112
  Serious: Yes (Death)
  Sender: FDA-Public Use
  Company Number: US-BAUSCH-BL-2022-025220

PATIENT
  Age: 80 Year
  Sex: Male

DRUGS (1)
  1. TARGRETIN [Suspect]
     Active Substance: BEXAROTENE
     Indication: T-cell lymphoma
     Route: 048

REACTIONS (2)
  - T-cell lymphoma [Fatal]
  - Inappropriate schedule of product administration [Unknown]
